FAERS Safety Report 5268184-3 (Version None)
Quarter: 2007Q1

REPORT INFORMATION
  Report Type: 
  Country: None (occurrence: None)
  Receive Date: 20070316
  Receipt Date: 20070316
  Transmission Date: 20070707
  Serious: No
  Sender: FDA-Public Use
  Company Number: None

PATIENT
  Sex: Female
  Weight: 61.8 kg

DRUGS (5)
  1. TEMOZOLOMIDE 1650 MG [Suspect]
     Dosage: 1650 MG
  2. TEMOZOLOMIDE [Suspect]
  3. DECADRON [Concomitant]
  4. KEPPRA [Concomitant]
  5. SEPTRA DS [Concomitant]

REACTIONS (3)
  - LEUKOPENIA [None]
  - NEUTROPENIA [None]
  - THROMBOCYTOPENIA [None]
